FAERS Safety Report 4815145-1 (Version None)
Quarter: 2005Q4

REPORT INFORMATION
  Report Type: 
  Country: None (occurrence: None)
  Receive Date: 20051027
  Receipt Date: 20051014
  Transmission Date: 20060501
  Serious: Yes (Other)
  Sender: FDA-Public Use
  Company Number: 2005142115

PATIENT
  Sex: Female
  Weight: 47.6277 kg

DRUGS (3)
  1. SUDAFED 12 HOUR [Suspect]
     Indication: EUPHORIC MOOD
     Dosage: ORAL
     Route: 048
  2. PSEUDOEPHEDRINE HCL [Suspect]
     Indication: EUPHORIC MOOD
     Dosage: ORAL
     Route: 048
  3. ALPRAZOLAM [Concomitant]

REACTIONS (3)
  - ANXIETY [None]
  - INTENTIONAL DRUG MISUSE [None]
  - TENSION [None]
